FAERS Safety Report 7064419-5 (Version None)
Quarter: 2010Q4

REPORT INFORMATION
  Report Type: 
  Country: None (occurrence: None)
  Receive Date: 20101027
  Receipt Date: 20101014
  Transmission Date: 20110411
  Serious: Yes (Hospitalization)
  Sender: FDA-Public Use
  Company Number: PHHY2010US69539

PATIENT
  Sex: Female

DRUGS (5)
  1. EXJADE [Suspect]
     Indication: IRON OVERLOAD
     Dosage: 1000 MG, QD
     Route: 048
  2. HYDREA [Concomitant]
     Indication: SICKLE CELL ANAEMIA
     Dosage: 500 MG DAILY
     Route: 048
  3. ALPRAZOLAM [Concomitant]
     Indication: ANXIETY
     Dosage: 0.25 MG, Q8H
     Route: 048
  4. ATENOLOL [Concomitant]
     Indication: HYPERTENSION
     Dosage: 50 MG DAILY
     Route: 048
  5. FOLIC ACID [Concomitant]
     Dosage: 800 MCG DAILY
     Route: 048

REACTIONS (4)
  - HAEMOPTYSIS [None]
  - LEUKOCYTOSIS [None]
  - SICKLE CELL ANAEMIA WITH CRISIS [None]
  - VENOOCCLUSIVE DISEASE [None]
